FAERS Safety Report 5773673-9 (Version None)
Quarter: 2008Q2

REPORT INFORMATION
  Report Type: 
  Country: None (occurrence: None)
  Receive Date: 20080616
  Receipt Date: 20080604
  Transmission Date: 20081010
  Serious: Yes (Hospitalization)
  Sender: FDA-Public Use
  Company Number: ZA-ASTRAZENECA-2008SE02640

PATIENT
  Age: 29742 Day
  Sex: Male
  Weight: 92 kg

DRUGS (12)
  1. ROSUVASTATIN [Suspect]
     Indication: CARDIOVASCULAR EVENT PROPHYLAXIS
     Route: 048
     Dates: start: 20060319, end: 20061129
  2. ROSUVASTATIN [Suspect]
     Route: 048
     Dates: start: 20061212, end: 20071011
  3. ROSUVASTATIN [Suspect]
     Route: 048
     Dates: start: 20080206
  4. WARFARIN [Suspect]
     Indication: ATRIAL FIBRILLATION
     Route: 048
     Dates: start: 20061208
  5. RIDAQ [Concomitant]
     Indication: HYPERTENSION
     Route: 048
     Dates: start: 20060615
  6. SLOW-K [Concomitant]
     Indication: CARDIAC FAILURE CONGESTIVE
     Route: 048
     Dates: start: 20060615
  7. LASIX [Concomitant]
     Indication: CARDIAC FAILURE CONGESTIVE
     Route: 048
     Dates: start: 20061212
  8. METHYL SALICYLATE [Concomitant]
     Indication: OSTEOARTHRITIS
     Route: 061
     Dates: start: 20061207
  9. ENALAPRIL MALEATE [Concomitant]
     Indication: CARDIAC FAILURE CONGESTIVE
     Route: 048
     Dates: start: 20061212
  10. VITAMIN B CO [Concomitant]
     Indication: SUPPLEMENTATION THERAPY
     Route: 048
     Dates: start: 20061212
  11. DISPRIN [Concomitant]
     Indication: ANTICOAGULANT THERAPY
     Route: 048
     Dates: start: 20061212
  12. LOSEC I.V. [Concomitant]
     Indication: DUODENITIS
     Route: 048
     Dates: start: 20070301

REACTIONS (1)
  - PARAPLEGIA [None]
